FAERS Safety Report 5413528-2 (Version None)
Quarter: 2007Q3

REPORT INFORMATION
  Report Type: 
  Country: None (occurrence: None)
  Receive Date: 20070814
  Receipt Date: 20070803
  Transmission Date: 20080115
  Serious: Yes (Death)
  Sender: FDA-Public Use
  Company Number: HQWYE388003AUG07

PATIENT
  Sex: Male

DRUGS (1)
  1. TYGACIL [Suspect]
     Indication: DECUBITUS ULCER
     Dosage: 100MG LOADING DOSE THEN 50MG EVERY 12 HOURS
     Route: 042

REACTIONS (1)
  - MYOCARDIAL INFARCTION [None]
